FAERS Safety Report 7577131-0 (Version None)
Quarter: 2011Q2

REPORT INFORMATION
  Report Type: 
  Country: None (occurrence: None)
  Receive Date: 20110628
  Receipt Date: 20110617
  Transmission Date: 20111010
  Serious: Yes (Death)
  Sender: FDA-Public Use
  Company Number: DE-CELGENEUS-062-50794-11032935

PATIENT
  Age: 80 Week
  Sex: Female
  Weight: 55 kg

DRUGS (8)
  1. PALLADONE [Concomitant]
     Route: 048
  2. ONDANSETRON [Concomitant]
     Route: 048
  3. PALLADONE [Concomitant]
     Route: 048
  4. TORSEMIDE [Concomitant]
     Route: 048
  5. VIDAZA [Suspect]
     Dosage: 75 MILLIGRAM/SQ. METER
     Route: 058
     Dates: start: 20110207, end: 20110215
  6. VIDAZA [Suspect]
     Dosage: 75 MILLIGRAM/SQ. METER
     Route: 058
     Dates: start: 20110308, end: 20110311
  7. PROCHLORPERAZINE [Concomitant]
     Route: 048
  8. PANTOPRAZOLE [Concomitant]
     Route: 048

REACTIONS (2)
  - FASCIITIS [None]
  - MULTI-ORGAN FAILURE [None]
